FAERS Safety Report 19497160 (Version 1)
Quarter: 2021Q3

REPORT INFORMATION
  Report Type: Report from Study
  Country: US (occurrence: US)
  Receive Date: 20210706
  Receipt Date: 20210706
  Transmission Date: 20211014
  Serious: Yes (Other)
  Sender: FDA-Public Use
  Company Number: US-BAYER-2020-252854

PATIENT

DRUGS (1)
  1. AFRIN [Suspect]
     Active Substance: OXYMETAZOLINE

REACTIONS (3)
  - Nasal discomfort [Unknown]
  - Nasal dryness [Unknown]
  - Drug dependence [Unknown]
